FAERS Safety Report 11428302 (Version 1)
Quarter: 2015Q3

REPORT INFORMATION
  Report Type: Spontaneous
  Country: US (occurrence: US)
  Receive Date: 20150828
  Receipt Date: 20150828
  Transmission Date: 20151125
  Serious: No
  Sender: FDA-Public Use
  Company Number: US-ROCHE-1248534

PATIENT
  Sex: Male
  Weight: 91.71 kg

DRUGS (2)
  1. PEGASYS [Suspect]
     Active Substance: PEGINTERFERON ALFA-2A
     Indication: CHRONIC HEPATITIS C
     Route: 058
     Dates: start: 20130402
  2. RIBASPHERE [Suspect]
     Active Substance: RIBAVIRIN
     Indication: CHRONIC HEPATITIS C
     Dosage: DIVIDED DOSE 400/400
     Route: 065
     Dates: start: 20130402

REACTIONS (10)
  - Gait disturbance [Unknown]
  - Thrombosis [Unknown]
  - Irritability [Unknown]
  - Ligament sprain [Unknown]
  - Exostosis [Unknown]
  - Platelet count decreased [Unknown]
  - White blood cell count decreased [Unknown]
  - Weight increased [Unknown]
  - Pain in extremity [Unknown]
  - Fatigue [Unknown]
